FAERS Safety Report 10215169 (Version 2)
Quarter: 2014Q2

REPORT INFORMATION
  Report Type: Spontaneous
  Country: GB (occurrence: GB)
  Receive Date: 20140603
  Receipt Date: 20140617
  Transmission Date: 20141212
  Serious: Yes (Other)
  Sender: FDA-Public Use
  Company Number: PHHY2014GB065356

PATIENT
  Age: 80 Year
  Sex: Female
  Weight: 74 kg

DRUGS (8)
  1. RAMIPRIL [Suspect]
     Dates: start: 20140408
  2. BECONASE [Concomitant]
     Dates: start: 20140408, end: 20140506
  3. CANDESARTAN [Concomitant]
     Dates: start: 20140211, end: 20140408
  4. FEXOFENADINE [Concomitant]
     Dates: start: 20140211, end: 20140506
  5. FULTIUM [Concomitant]
     Dates: start: 20140211
  6. QVAR [Concomitant]
     Dates: start: 20140211, end: 20140506
  7. VENTOLIN [Concomitant]
     Dates: start: 20140211, end: 20140311
  8. VIAZEM XL [Concomitant]
     Dates: start: 20140211

REACTIONS (2)
  - Urticaria [Recovering/Resolving]
  - Condition aggravated [Recovering/Resolving]
